FAERS Safety Report 7349677-1 (Version None)
Quarter: 2011Q1

REPORT INFORMATION
  Report Type: 
  Country: None (occurrence: None)
  Receive Date: 20110314
  Receipt Date: 20110214
  Transmission Date: 20110831
  Serious: No
  Sender: FDA-Public Use
  Company Number: US-B.I. PHARMACEUTICALS,INC./RIDGEFIELD-2011-BP-03931BP

PATIENT
  Sex: Male

DRUGS (5)
  1. PRADAXA [Suspect]
     Indication: ATRIAL FIBRILLATION
     Dosage: 300 MG
     Route: 048
     Dates: start: 20110122
  2. HYZAAR [Concomitant]
     Indication: PROSTATOMEGALY
  3. SPIRONOLACTONE [Concomitant]
     Indication: HYPERTENSION
  4. HYTRIN [Concomitant]
     Indication: HYPERTENSION
  5. FLOMAX [Concomitant]
     Indication: PROSTATOMEGALY

REACTIONS (4)
  - CONTUSION [None]
  - ABDOMINAL DISCOMFORT [None]
  - FLATULENCE [None]
  - ASTHENIA [None]
